FAERS Safety Report 23463083 (Version 1)
Quarter: 2024Q1

REPORT INFORMATION
  Report Type: Spontaneous
  Country: US (occurrence: US)
  Receive Date: 20240131
  Receipt Date: 20240131
  Transmission Date: 20240410
  Serious: No
  Sender: FDA-Public Use
  Company Number: US-PFIZER INC-202400024960

PATIENT
  Age: 77 Year
  Sex: Female

DRUGS (1)
  1. CYTOMEL [Suspect]
     Active Substance: LIOTHYRONINE SODIUM
     Indication: Hypothyroidism
     Dosage: 160 UG, DAILY, 60MCG IN THE MORNING, 60MCG IN THE AFTERNOON, AND 40MCG IN THE EVENING

REACTIONS (1)
  - Asthenia [Unknown]
